FAERS Safety Report 5444781-7 (Version None)
Quarter: 2007Q3

REPORT INFORMATION
  Report Type: 
  Country: None (occurrence: None)
  Receive Date: 20070906
  Receipt Date: 20070411
  Transmission Date: 20080115
  Serious: No
  Sender: FDA-Public Use
  Company Number: A0643038A

PATIENT
  Age: 88 Year
  Sex: Female
  Weight: 70 kg

DRUGS (8)
  1. REQUIP [Suspect]
     Indication: RESTLESS LEGS SYNDROME
     Dosage: 3.5MG PER DAY
     Route: 048
     Dates: start: 20050101
  2. SYNTHROID [Concomitant]
  3. HYDROCHLOROTHIAZIDE [Concomitant]
  4. CELEBREX [Concomitant]
  5. ASPIRIN [Concomitant]
  6. GLUCOSAMINE + CHONDROITIN SULPHATE [Concomitant]
  7. CALCIUM [Concomitant]
  8. VITAMIN CAP [Concomitant]

REACTIONS (3)
  - BALANCE DISORDER [None]
  - GAIT DISTURBANCE [None]
  - THERAPEUTIC RESPONSE DECREASED [None]
